FAERS Safety Report 5580118-0 (Version None)
Quarter: 2007Q4

REPORT INFORMATION
  Report Type: 
  Country: None (occurrence: None)
  Receive Date: 20071227
  Receipt Date: 20071227
  Transmission Date: 20080405
  Serious: Yes (Death, Life-Threatening, Hospitalization)
  Sender: FDA-Public Use
  Company Number: None

PATIENT
  Age: 73 Year
  Sex: Female

DRUGS (15)
  1. WARFARIN SODIUM [Suspect]
     Indication: HEART VALVE REPLACEMENT
     Dosage: DAILY PO
     Route: 048
  2. WARFARIN SODIUM [Concomitant]
  3. STARLIX [Concomitant]
  4. PROTONIX [Concomitant]
  5. FOSAMAX [Concomitant]
  6. LIPITOR [Concomitant]
  7. AVANDIA [Concomitant]
  8. CALCIUM [Concomitant]
  9. FISH OIL [Concomitant]
  10. COREG [Concomitant]
  11. MAGNESIUM OXIDE [Concomitant]
  12. ZETIA [Concomitant]
  13. ISOSORBIDE DINITRATE [Concomitant]
  14. SPIRONOLACTONE [Concomitant]
  15. FOLIC ACID [Concomitant]

REACTIONS (6)
  - BRAIN HERNIATION [None]
  - COAGULOPATHY [None]
  - FALL [None]
  - INTERNATIONAL NORMALISED RATIO INCREASED [None]
  - LOSS OF CONSCIOUSNESS [None]
  - SUBDURAL HAEMATOMA [None]
